FAERS Safety Report 7308410-X (Version None)
Quarter: 2011Q1

REPORT INFORMATION
  Report Type: 
  Country: None (occurrence: None)
  Receive Date: 20110211
  Receipt Date: 20110127
  Transmission Date: 20110831
  Serious: Yes (Hospitalization, Congenital Anomaly)
  Sender: FDA-Public Use
  Company Number: 026435

PATIENT
  Sex: Male
  Weight: 2.9 kg

DRUGS (4)
  1. LAMOTRIGINE [Suspect]
     Indication: EPILEPSY
     Dosage: (325 MG, 3 X 75+100 MG DAILY TRANSPLACENTAL)
     Route: 064
  2. VALPROIC ACID (VALPROINSAURE) [Suspect]
     Indication: EPILEPSY
     Dosage: (1750 MG, 500- 500- 750 MG TRANSPLACENTAL)
     Route: 064
  3. FOLIC ACID [Concomitant]
  4. LEVETIRACETAM [Suspect]
     Indication: EPILEPSY
     Dosage: (250 MG TID TRANSPLACENTAL)
     Route: 064

REACTIONS (8)
  - HYPOTONIA NEONATAL [None]
  - NEONATAL RESPIRATORY DISTRESS SYNDROME [None]
  - FEEDING DISORDER NEONATAL [None]
  - DYSMORPHISM [None]
  - HAND DEFORMITY [None]
  - CONGENITAL SPINAL CORD ANOMALY [None]
  - MATERNAL DRUGS AFFECTING FOETUS [None]
  - AGITATION NEONATAL [None]
